FAERS Safety Report 6434977-X (Version None)
Quarter: 2009Q4

REPORT INFORMATION
  Report Type: 
  Country: None (occurrence: None)
  Receive Date: 20091110
  Receipt Date: 20091029
  Transmission Date: 20100525
  Serious: No
  Sender: FDA-Public Use
  Company Number: US-B.I. PHARMACEUTICALS,INC./RIDGEFIELD-2009-BP-12718BP

PATIENT
  Sex: Male

DRUGS (8)
  1. ZANTAC 75 [Suspect]
     Indication: ABDOMINAL PAIN UPPER
     Dosage: 75 MG
     Route: 048
     Dates: start: 20090801
  2. UROXITRAL [Concomitant]
     Indication: PROSTATOMEGALY
  3. FINESTRA [Concomitant]
     Indication: PROSTATOMEGALY
  4. ADVAIR DISKUS 100/50 [Concomitant]
     Indication: EMPHYSEMA
  5. XOPENEX [Concomitant]
     Indication: EMPHYSEMA
  6. SPIRIVA [Concomitant]
     Indication: EMPHYSEMA
  7. MUCINEX [Concomitant]
     Indication: PULMONARY CONGESTION
  8. SINGULAIR [Concomitant]

REACTIONS (3)
  - DIZZINESS [None]
  - INCORRECT DRUG ADMINISTRATION DURATION [None]
  - NAUSEA [None]
